FAERS Safety Report 25806626 (Version 1)
Quarter: 2025Q3

REPORT INFORMATION
  Report Type: Spontaneous
  Country: GB (occurrence: GB)
  Receive Date: 20250916
  Receipt Date: 20250916
  Transmission Date: 20251021
  Serious: Yes (Death, Other)
  Sender: DAIICHI
  Company Number: GB-DSJP-DS-2025-164874-GB

PATIENT
  Age: 56 Year

DRUGS (1)
  1. ENHERTU [Suspect]
     Active Substance: FAM-TRASTUZUMAB DERUXTECAN-NXKI
     Indication: Breast cancer
     Route: 065
     Dates: start: 202304

REACTIONS (3)
  - Death [Fatal]
  - Pleural effusion [Unknown]
  - Dizziness [Unknown]
